FAERS Safety Report 8577654-1 (Version None)
Quarter: 2012Q3

REPORT INFORMATION
  Report Type: 
  Country: None (occurrence: None)
  Receive Date: 20120807
  Receipt Date: 20120802
  Transmission Date: 20120928
  Serious: Yes (Hospitalization, Other)
  Sender: FDA-Public Use
  Company Number: US-AMGEN-USACT2012039156

PATIENT
  Age: 54 Year
  Sex: Female
  Weight: 73.45 kg

DRUGS (36)
  1. DENOSUMAB [Suspect]
     Indication: BREAST CANCER
     Dosage: 120 ML, UNK
     Route: 058
     Dates: start: 20120305
  2. DOXORUBICIN HYDROCHLORIDE [Concomitant]
     Dosage: 90 MG, UNK
     Route: 042
  3. DEXAMETHASONE [Concomitant]
     Dosage: UNK
     Route: 048
     Dates: start: 20120304
  4. CLONIDINE [Concomitant]
     Dosage: UNK
     Route: 048
     Dates: start: 20060101
  5. ZOFRAN [Concomitant]
     Indication: NAUSEA
     Dosage: 4 MG, PRN
     Route: 042
  6. COMPAZINE [Concomitant]
     Dosage: UNK
     Dates: start: 20120305
  7. AMLODIPINE [Concomitant]
     Dosage: 10 MG, UNK
     Route: 048
     Dates: start: 20060101
  8. CYCLOBENZAPRINE [Concomitant]
     Dosage: 10 MG, TID
     Route: 048
     Dates: start: 20060101
  9. PROMETHAZINE [Concomitant]
     Indication: VOMITING
  10. ARMODAFINIL [Concomitant]
     Dosage: UNK
     Route: 048
  11. METHADONE HYDROCHLORIDE [Concomitant]
     Dosage: 10 MG, UNK
     Route: 048
     Dates: start: 20060101
  12. AMLODIPINE BESYLATE AND VALSARTAN [Concomitant]
  13. CALCIUM WITH VITAMIN D [Concomitant]
  14. CYCLOPHOSPHAMIDE [Concomitant]
     Dosage: 900 MG, UNK
     Route: 042
  15. VALTREX [Concomitant]
     Dosage: 1000 MG, UNK
     Route: 048
     Dates: start: 20120402, end: 20120416
  16. CLINDAMYCIN [Concomitant]
     Dosage: 300 MG, TID
     Route: 048
     Dates: start: 20120402, end: 20120416
  17. CALCIUM CARBONATE [Concomitant]
     Dosage: 500 MG, UNK
     Route: 048
     Dates: start: 20120305
  18. NYSTATIN [Concomitant]
     Dosage: UNK UNK, QID
  19. ARMODAFINIL [Concomitant]
     Route: 048
     Dates: start: 20120604, end: 20120609
  20. TIZANIDINE HYDROCHLORIDE [Concomitant]
     Dosage: 2 MG, UNK
     Route: 048
     Dates: start: 20060101
  21. PROTONIX [Concomitant]
     Dosage: 40 MG, UNK
     Route: 048
     Dates: start: 20120402
  22. AMITRIPTYLINE HCL [Concomitant]
     Dosage: 20 MG, QHS
     Route: 048
     Dates: start: 20070101
  23. ZOFRAN [Concomitant]
     Indication: VOMITING
  24. PALONOSETRON [Concomitant]
     Dosage: 0.25 MG, UNK
     Route: 042
     Dates: start: 20120305
  25. ROCEPHIN [Concomitant]
     Dosage: 2 G, UNK
     Route: 042
     Dates: start: 20120402, end: 20120402
  26. VORICONAZOLE [Concomitant]
  27. ADVIL [Concomitant]
     Dosage: UNK UNK, PRN
  28. BYSTOLIC [Concomitant]
     Dosage: 10 MG, BID
     Route: 048
     Dates: start: 20060101
  29. SERTRALINE [Concomitant]
     Dosage: 50 MG, UNK
     Route: 048
     Dates: start: 20070101
  30. ATIVAN [Concomitant]
     Indication: INSOMNIA
     Dosage: UNK UNK, PRN
  31. NEULASTA [Concomitant]
     Dosage: UNK
     Dates: start: 20120619
  32. DOCETAXEL [Concomitant]
     Dosage: 135 MG, UNK
     Route: 042
  33. HYDROCODONE BITARTRATE AND ACETAMINOPHEN [Concomitant]
     Indication: PAIN
     Dosage: UNK UNK, PRN
     Route: 048
     Dates: start: 20120104
  34. VITAMIN D [Concomitant]
     Dosage: 5000 IU, UNK
     Route: 048
     Dates: start: 20120305
  35. TYLENOL [Concomitant]
     Indication: BODY TEMPERATURE INCREASED
     Dosage: UNK UNK, PRN
  36. PROMETHAZINE [Concomitant]
     Indication: NAUSEA
     Dosage: UNK UNK, PRN

REACTIONS (2)
  - FEBRILE NEUTROPENIA [None]
  - HYPOCALCAEMIA [None]
